FAERS Safety Report 4518160-0 (Version None)
Quarter: 2004Q4

REPORT INFORMATION
  Report Type: 
  Country: None (occurrence: None)
  Receive Date: 20041130
  Receipt Date: 20041117
  Transmission Date: 20050328
  Serious: Yes (Other)
  Sender: FDA-Public Use
  Company Number: A03200403702

PATIENT
  Age: 74 Year
  Sex: Male
  Weight: 104.3273 kg

DRUGS (2)
  1. ELIGARD [Suspect]
     Indication: PROSTATE CANCER
     Dosage: 22.5 MG Q3M -SUBCUTANEOUS
     Route: 058
     Dates: start: 20041229, end: 20040329
  2. ELIGARD [Suspect]
     Indication: PROSTATE CANCER
     Dosage: 22.5 MG Q3M - SUBCUTANEOUS
     Route: 058
     Dates: start: 20040329, end: 20040601

REACTIONS (3)
  - GRAM STAIN POSITIVE [None]
  - IMPAIRED HEALING [None]
  - INJECTION SITE ABSCESS STERILE [None]
